FAERS Safety Report 5879752-X (Version None)
Quarter: 2008Q3

REPORT INFORMATION
  Report Type: 
  Country: None (occurrence: None)
  Receive Date: 20080912
  Receipt Date: 20080903
  Transmission Date: 20090109
  Serious: Yes (Death, Hospitalization)
  Sender: FDA-Public Use
  Company Number: US-AVENTIS-200818384GDDC

PATIENT
  Age: 68 Year
  Sex: Male
  Weight: 73.03 kg

DRUGS (10)
  1. DOCETAXEL [Suspect]
     Indication: NON-SMALL CELL LUNG CANCER METASTATIC
     Route: 042
     Dates: start: 20080716, end: 20080806
  2. CETUXIMAB [Suspect]
     Indication: NON-SMALL CELL LUNG CANCER METASTATIC
     Route: 042
     Dates: start: 20080716, end: 20080813
  3. SIMVASTATIN [Concomitant]
     Route: 048
  4. OMEPRAZOLE [Concomitant]
  5. NIACIN [Concomitant]
     Route: 048
  6. VICODIN [Concomitant]
     Dosage: DOSE: 2 TABLETS
     Route: 048
  7. MIRALAX [Concomitant]
     Dosage: DOSE QUANTITY: 1
  8. MEGACE [Concomitant]
     Route: 048
  9. ASPIRIN [Concomitant]
  10. MORPHINE [Concomitant]

REACTIONS (2)
  - BRONCHIAL HAEMORRHAGE [None]
  - HAEMOPTYSIS [None]
